FAERS Safety Report 24383603 (Version 8)
Quarter: 2025Q1

REPORT INFORMATION
  Report Type: Spontaneous
  Country: AT (occurrence: AT)
  Receive Date: 20241001
  Receipt Date: 20250108
  Transmission Date: 20250409
  Serious: Yes (Death, Hospitalization, Other)
  Sender: SANDOZ
  Company Number: AT-HIKMA PHARMACEUTICALS-AT-H14001-24-08734

PATIENT
  Age: 75 Year
  Sex: Male

DRUGS (36)
  1. DIPRIVAN [Suspect]
     Active Substance: PROPOFOL
     Indication: Encephalomyelitis
     Route: 065
  2. BACLOFEN [Suspect]
     Active Substance: BACLOFEN
     Indication: Encephalomyelitis
     Route: 065
  3. BACLOFEN [Suspect]
     Active Substance: BACLOFEN
     Indication: Product used for unknown indication
     Route: 037
  4. BACLOFEN [Suspect]
     Active Substance: BACLOFEN
     Indication: Encephalomyelitis
  5. BACLOFEN [Suspect]
     Active Substance: BACLOFEN
     Indication: Immune-mediated neurological disorder
  6. BACLOFEN [Suspect]
     Active Substance: BACLOFEN
     Indication: Immune-mediated neurological disorder
  7. CYCLOPHOSPHAMIDE [Suspect]
     Active Substance: CYCLOPHOSPHAMIDE
     Indication: Encephalomyelitis
     Route: 065
  8. DEXMEDETOMIDINE [Suspect]
     Active Substance: DEXMEDETOMIDINE
     Indication: Encephalomyelitis
     Route: 065
  9. DIAZEPAM [Suspect]
     Active Substance: DIAZEPAM
     Indication: Product used for unknown indication
     Route: 065
  10. DRONABINOL [Suspect]
     Active Substance: DRONABINOL
     Indication: Product used for unknown indication
     Route: 065
  11. DRONABINOL [Suspect]
     Active Substance: DRONABINOL
     Indication: Encephalomyelitis
  12. DRONABINOL [Suspect]
     Active Substance: DRONABINOL
     Indication: Encephalomyelitis
  13. DRONABINOL [Suspect]
     Active Substance: DRONABINOL
     Indication: Immune-mediated neurological disorder
  14. DRONABINOL [Suspect]
     Active Substance: DRONABINOL
     Indication: Immune-mediated neurological disorder
  15. HUMAN IMMUNOGLOBULIN G [Suspect]
     Active Substance: HUMAN IMMUNOGLOBULIN G
     Indication: Encephalomyelitis
     Route: 042
  16. ISOFLURANE [Suspect]
     Active Substance: ISOFLURANE
     Indication: Product used for unknown indication
     Route: 055
  17. METHOTREXATE [Suspect]
     Active Substance: METHOTREXATE
     Indication: Product used for unknown indication
     Route: 065
  18. METHYLPREDNISOLONE [Suspect]
     Active Substance: METHYLPREDNISOLONE
     Indication: Encephalomyelitis
     Route: 065
  19. SUFENTANIL [Suspect]
     Active Substance: SUFENTANIL
     Indication: Encephalomyelitis
     Route: 065
  20. TIAPRIDE [Suspect]
     Active Substance: TIAPRIDE
     Indication: Product used for unknown indication
     Route: 065
  21. TIAPRIDE [Suspect]
     Active Substance: TIAPRIDE
     Indication: Encephalomyelitis
  22. TIAPRIDE [Suspect]
     Active Substance: TIAPRIDE
     Indication: Encephalomyelitis
  23. TIAPRIDE [Suspect]
     Active Substance: TIAPRIDE
     Indication: Encephalomyelitis
  24. TIAPRIDE [Suspect]
     Active Substance: TIAPRIDE
     Indication: Encephalomyelitis
  25. TIAPRIDE [Suspect]
     Active Substance: TIAPRIDE
     Indication: Encephalomyelitis
  26. TIAPRIDE [Suspect]
     Active Substance: TIAPRIDE
     Indication: Encephalomyelitis
  27. TIAPRIDE [Suspect]
     Active Substance: TIAPRIDE
     Indication: Immune-mediated neurological disorder
  28. TIAPRIDE [Suspect]
     Active Substance: TIAPRIDE
     Indication: Immune-mediated neurological disorder
  29. TIAPRIDE [Suspect]
     Active Substance: TIAPRIDE
     Indication: Immune-mediated neurological disorder
  30. TIAPRIDE [Suspect]
     Active Substance: TIAPRIDE
     Indication: Immune-mediated neurological disorder
  31. TIAPRIDE [Suspect]
     Active Substance: TIAPRIDE
     Indication: Immune-mediated neurological disorder
  32. TIAPRIDE [Suspect]
     Active Substance: TIAPRIDE
     Indication: Immune-mediated neurological disorder
  33. VELCADE [Suspect]
     Active Substance: BORTEZOMIB
     Indication: Encephalomyelitis
     Route: 065
  34. TRYPTOPHAN [Concomitant]
     Active Substance: TRYPTOPHAN
     Indication: Immunoadsorption therapy
     Route: 065
  35. TRYPTOPHAN [Concomitant]
     Active Substance: TRYPTOPHAN
     Indication: Product used for unknown indication
     Route: 065
  36. TRYPTOPHAN [Concomitant]
     Active Substance: TRYPTOPHAN
     Route: 065

REACTIONS (6)
  - Autonomic nervous system imbalance [Fatal]
  - Rebound effect [Fatal]
  - Agitation [Fatal]
  - Drug ineffective [Fatal]
  - Off label use [Unknown]
  - Drug ineffective for unapproved indication [Unknown]
